FAERS Safety Report 18310014 (Version 1)
Quarter: 2020Q3

REPORT INFORMATION
  Report Type: Spontaneous
  Country: US (occurrence: US)
  Receive Date: 20200924
  Receipt Date: 20200924
  Transmission Date: 20201103
  Serious: No
  Sender: FDA-Public Use
  Company Number: US-PFIZER INC-2017076856

PATIENT
  Age: 68 Year
  Sex: Female
  Weight: 76.2 kg

DRUGS (1)
  1. LYRICA [Suspect]
     Active Substance: PREGABALIN
     Indication: NEUROPATHY PERIPHERAL
     Dosage: 200 MG, 3X/DAY
     Route: 048
     Dates: end: 2020

REACTIONS (3)
  - Off label use [Unknown]
  - Peripheral swelling [Unknown]
  - Product use in unapproved indication [Unknown]
